FAERS Safety Report 13275711 (Version 1)
Quarter: 2017Q1

REPORT INFORMATION
  Report Type: Spontaneous
  Country: US (occurrence: US)
  Receive Date: 20170227
  Receipt Date: 20170227
  Transmission Date: 20170428
  Serious: No
  Sender: FDA-Public Use
  Company Number: None

PATIENT
  Age: 18 Year
  Sex: Male
  Weight: 60.75 kg

DRUGS (1)
  1. COMPOUND W MAXIMUM STRENGTH ONE STEP INVISIBLE [Suspect]
     Active Substance: SALICYLIC ACID

REACTIONS (3)
  - Arthralgia [None]
  - Bone pain [None]
  - Application site pain [None]

NARRATIVE: CASE EVENT DATE: 20170220
